FAERS Safety Report 20154294 (Version 2)
Quarter: 2022Q1

REPORT INFORMATION
  Report Type: Spontaneous
  Country: US (occurrence: US)
  Receive Date: 20211207
  Receipt Date: 20220302
  Transmission Date: 20220423
  Serious: No
  Sender: FDA-Public Use
  Company Number: US-BAUSCH-BL-2021-039586

PATIENT
  Sex: Female

DRUGS (3)
  1. PROLENSA [Suspect]
     Active Substance: BROMFENAC SODIUM
     Indication: Postoperative care
     Dosage: 1 DROP OF PROLENSA EVERY DAY IN THE AFFECTED EYE.
     Route: 047
     Dates: start: 20211112, end: 202112
  2. ARTIFICIAL TEARS [Concomitant]
     Active Substance: GLYCERIN\HYPROMELLOSES\POLYETHYLENE GLYCOL 400
     Indication: Product used for unknown indication
  3. BESIVANCE [Concomitant]
     Active Substance: BESIFLOXACIN
     Indication: Cataract operation
     Dates: start: 20211112, end: 20211118

REACTIONS (1)
  - Instillation site pain [Recovered/Resolved]

NARRATIVE: CASE EVENT DATE: 20211112
